FAERS Safety Report 8782259 (Version 2)
Quarter: 2013Q1

REPORT INFORMATION
  Report Type: Spontaneous
  Country: US (occurrence: US)
  Receive Date: 20120913
  Receipt Date: 20130219
  Transmission Date: 20140127
  Serious: Yes (Other)
  Sender: FDA-Public Use
  Company Number: US-UCBSA-064587

PATIENT
  Age: 30 Year
  Sex: Male

DRUGS (2)
  1. CIMZIA [Suspect]
     Indication: CROHN^S DISEASE
     Route: 058
     Dates: start: 20100412
  2. INSULIN PUMP [Concomitant]
     Dosage: UNKNOWN

REACTIONS (4)
  - Diabetes mellitus [Recovered/Resolved]
  - Diarrhoea haemorrhagic [Recovered/Resolved]
  - Tooth loss [Not Recovered/Not Resolved]
  - Tooth fracture [Not Recovered/Not Resolved]
